FAERS Safety Report 13875200 (Version 1)
Quarter: 2017Q3

REPORT INFORMATION
  Report Type: Spontaneous
  Country: AU (occurrence: AU)
  Receive Date: 20170816
  Receipt Date: 20170816
  Transmission Date: 20171127
  Serious: Yes (Other)
  Sender: FDA-Public Use
  Company Number: AU-MYLANLABS-2017M1051074

PATIENT

DRUGS (5)
  1. OLANZAPINE. [Suspect]
     Active Substance: OLANZAPINE
     Indication: PRODUCT USED FOR UNKNOWN INDICATION
     Dosage: UNK
  2. PIPERACILLIN/TAZOBACTAM [Suspect]
     Active Substance: PIPERACILLIN SODIUM\TAZOBACTAM SODIUM
     Indication: PRODUCT USED FOR UNKNOWN INDICATION
     Dosage: UNK
  3. VALPROIC ACID. [Suspect]
     Active Substance: VALPROIC ACID
     Indication: PRODUCT USED FOR UNKNOWN INDICATION
     Dosage: UNK
  4. CLOZAPINE. [Suspect]
     Active Substance: CLOZAPINE
     Indication: PRODUCT USED FOR UNKNOWN INDICATION
     Dosage: UNK
  5. ALLOPURINOL. [Suspect]
     Active Substance: ALLOPURINOL
     Indication: PRODUCT USED FOR UNKNOWN INDICATION
     Dosage: UNK

REACTIONS (17)
  - Cholecystitis [Unknown]
  - Mental impairment [Unknown]
  - Empyema [Unknown]
  - Dystonia [Unknown]
  - Lower respiratory tract infection [Unknown]
  - Seizure [Unknown]
  - Extrapyramidal disorder [Unknown]
  - Thrombocytopenia [Unknown]
  - Aggression [Unknown]
  - Hallucination [Unknown]
  - Liver abscess [Unknown]
  - Serum ferritin increased [Unknown]
  - Thinking abnormal [Unknown]
  - Sepsis [Unknown]
  - Liver disorder [Unknown]
  - Persecutory delusion [Unknown]
  - Agranulocytosis [Unknown]
